FAERS Safety Report 5060107-5 (Version None)
Quarter: 2006Q3

REPORT INFORMATION
  Report Type: 
  Country: None (occurrence: None)
  Receive Date: 20060724
  Receipt Date: 20060621
  Transmission Date: 20061208
  Serious: Yes (Death, Other)
  Sender: FDA-Public Use
  Company Number: JP-AVENTIS-200611919JP

PATIENT

DRUGS (6)
  1. TAXOTERE [Suspect]
     Indication: PHARYNGEAL CANCER STAGE UNSPECIFIED
     Route: 041
  2. TAXOTERE [Suspect]
     Route: 041
  3. CISPLATIN [Concomitant]
     Indication: PHARYNGEAL CANCER STAGE UNSPECIFIED
  4. FLUOROURACIL [Concomitant]
     Indication: PHARYNGEAL CANCER STAGE UNSPECIFIED
  5. RADIOTHERAPY [Concomitant]
     Indication: PHARYNGEAL CANCER STAGE UNSPECIFIED
  6. CBDCA [Concomitant]
     Indication: PHARYNGEAL CANCER STAGE UNSPECIFIED

REACTIONS (4)
  - BONE MARROW FAILURE [None]
  - DISEASE PROGRESSION [None]
  - MUCOSAL INFLAMMATION [None]
  - VOMITING [None]
